FAERS Safety Report 25883036 (Version 2)
Quarter: 2025Q4

REPORT INFORMATION
  Report Type: Report from Study
  Country: KR (occurrence: KR)
  Receive Date: 20251006
  Receipt Date: 20251106
  Transmission Date: 20260118
  Serious: Yes (Disabling, Other)
  Sender: NOVARTIS
  Company Number: KR-002147023-NVSC2024KR207390

PATIENT
  Age: 86 Year
  Sex: Female

DRUGS (2)
  1. BEOVU [Suspect]
     Active Substance: BROLUCIZUMAB-DBLL
     Indication: Neovascular age-related macular degeneration
     Dosage: 6 MG
     Route: 031
     Dates: start: 20240510, end: 20240710
  2. BEOVU [Suspect]
     Active Substance: BROLUCIZUMAB-DBLL
     Dosage: UNK (0.05 CC MONTHLY INJECTION FOR 3 MONTHS)
     Route: 031

REACTIONS (4)
  - Retinal artery occlusion [Recovered/Resolved]
  - Retinal vasculitis [Recovered/Resolved]
  - Vitreous haze [Unknown]
  - Visual field defect [Recovering/Resolving]

NARRATIVE: CASE EVENT DATE: 20240901
